FAERS Safety Report 9981310 (Version 3)
Quarter: 2014Q2

REPORT INFORMATION
  Report Type: Spontaneous
  Country: US (occurrence: None)
  Receive Date: 20140305
  Receipt Date: 20140624
  Transmission Date: 20141212
  Serious: Yes (Other)
  Sender: FDA-Public Use
  Company Number: ADR-2014-00332

PATIENT
  Age: 26 Year
  Sex: Male

DRUGS (1)
  1. LIORESAL [Suspect]
     Indication: MUSCLE SPASTICITY

REACTIONS (6)
  - Hypoaesthesia [None]
  - Muscle spasms [None]
  - Pruritus [None]
  - Paraesthesia [None]
  - Device alarm issue [None]
  - Device issue [None]
